FAERS Safety Report 10687189 (Version 2)
Quarter: 2015Q2

REPORT INFORMATION
  Report Type: Report from Study
  Country: US (occurrence: None)
  Receive Date: 20141229
  Receipt Date: 20150428
  Transmission Date: 20150821
  Serious: Yes (Other)
  Sender: FDA-Public Use
  Company Number: 2682771

PATIENT
  Age: 81 Year

DRUGS (3)
  1. VINCRISTINE SULPHATE INJECTION, USP (VINCRISTINE SULFATE) [Suspect]
     Active Substance: VINCRISTINE SULFATE
     Indication: CHRONIC LYMPHOCYTIC LEUKAEMIA
     Dosage: 1.4 MG MILLIGRAM(S) (CYCLICAL) INTRAVENOUS (NOT OTHERWISE SOECIFIED)
     Route: 042
     Dates: start: 20111123, end: 20120328
  2. PREDNISONE. [Suspect]
     Active Substance: PREDNISONE
     Indication: CHRONIC LYMPHOCYTIC LEUKAEMIA
     Route: 048
     Dates: start: 20111123, end: 20120328
  3. (CYCLOPHOSPHAMIDE) [Suspect]
     Active Substance: CYCLOPHOSPHAMIDE
     Indication: CHRONIC LYMPHOCYTIC LEUKAEMIA
     Route: 042
     Dates: start: 20111123, end: 20120328

REACTIONS (2)
  - Hip fracture [None]
  - Radius fracture [None]

NARRATIVE: CASE EVENT DATE: 20111224
